FAERS Safety Report 7280905-7 (Version None)
Quarter: 2011Q1

REPORT INFORMATION
  Report Type: 
  Country: None (occurrence: None)
  Receive Date: 20110208
  Receipt Date: 20101229
  Transmission Date: 20110831
  Serious: Yes (Death, Hospitalization, Other)
  Sender: FDA-Public Use
  Company Number: US-BAXTER-2008BH010177

PATIENT
  Age: 77 Year
  Sex: Female
  Weight: 56 kg

DRUGS (46)
  1. HEPARIN SODIUM INJECTION [Suspect]
     Route: 040
     Dates: start: 20071213, end: 20071213
  2. REMERON [Concomitant]
     Route: 065
  3. COMBIVENT                               /GFR/ [Concomitant]
     Indication: PRODUCT USED FOR UNKNOWN INDICATION
     Route: 065
  4. HEPARIN SODIUM INJECTION [Suspect]
     Route: 040
     Dates: start: 20071218, end: 20071218
  5. HEPARIN SODIUM INJECTION [Suspect]
     Route: 058
     Dates: start: 20071125, end: 20071125
  6. HEPARIN SODIUM INJECTION [Suspect]
     Route: 040
     Dates: start: 20071212, end: 20071212
  7. HEPARIN SODIUM INJECTION [Suspect]
     Route: 058
     Dates: start: 20071115, end: 20071115
  8. HEPARIN SODIUM INJECTION [Suspect]
     Route: 058
     Dates: start: 20071115, end: 20071115
  9. HEPARIN SODIUM INJECTION [Suspect]
     Route: 058
     Dates: start: 20071125, end: 20071125
  10. HEPARIN SODIUM INJECTION [Suspect]
     Route: 058
     Dates: start: 20071125, end: 20071125
  11. HEPARIN SODIUM INJECTION [Suspect]
     Route: 040
     Dates: start: 20071213, end: 20071213
  12. HEPARIN SODIUM INJECTION [Suspect]
     Route: 058
     Dates: start: 20071126, end: 20071126
  13. HEPARIN SODIUM INJECTION [Suspect]
     Route: 058
     Dates: start: 20071127, end: 20071127
  14. COUMADIN [Suspect]
     Indication: PRODUCT USED FOR UNKNOWN INDICATION
     Route: 048
     Dates: start: 20080115
  15. HEPARIN SODIUM INJECTION [Suspect]
     Route: 042
     Dates: start: 20071212, end: 20071220
  16. HEPARIN SODIUM INJECTION [Suspect]
     Route: 042
     Dates: start: 20071212, end: 20071220
  17. HEPARIN SODIUM INJECTION [Suspect]
     Route: 058
     Dates: start: 20071127, end: 20071127
  18. XANAX [Concomitant]
     Indication: PRODUCT USED FOR UNKNOWN INDICATION
     Route: 065
  19. PRILOSEC [Concomitant]
     Indication: PRODUCT USED FOR UNKNOWN INDICATION
     Route: 065
  20. HEPARIN SODIUM INJECTION [Suspect]
     Indication: THROMBOSIS PROPHYLAXIS
     Route: 042
     Dates: start: 20071113, end: 20080113
  21. HEPARIN SODIUM INJECTION [Suspect]
     Route: 058
     Dates: start: 20071114, end: 20071115
  22. HEPARIN SODIUM INJECTION [Suspect]
     Route: 040
     Dates: start: 20071218, end: 20071218
  23. HEPARIN SODIUM INJECTION [Suspect]
     Route: 058
     Dates: start: 20071127, end: 20071127
  24. NORVASC [Concomitant]
     Indication: PRODUCT USED FOR UNKNOWN INDICATION
     Route: 065
  25. NORVASC [Concomitant]
     Route: 065
  26. ASPIRIN [Concomitant]
     Indication: PRODUCT USED FOR UNKNOWN INDICATION
     Route: 065
  27. AZITHROMYCIN [Concomitant]
     Indication: PRODUCT USED FOR UNKNOWN INDICATION
     Route: 065
  28. LORAZEPAM [Concomitant]
     Indication: PRODUCT USED FOR UNKNOWN INDICATION
     Route: 065
  29. HEPARIN SODIUM INJECTION [Suspect]
     Route: 040
     Dates: start: 20071212, end: 20071212
  30. HEPARIN SODIUM INJECTION [Suspect]
     Route: 058
     Dates: start: 20071126, end: 20071126
  31. HEPARIN SODIUM INJECTION [Suspect]
     Route: 058
     Dates: start: 20071127, end: 20071127
  32. HEPARIN SODIUM 5,000 UNITS IN DEXTROSE 5% [Suspect]
     Indication: THROMBOSIS PROPHYLAXIS
     Route: 041
     Dates: start: 20071212, end: 20071201
  33. WARFARIN SODIUM [Concomitant]
     Indication: PRODUCT USED FOR UNKNOWN INDICATION
     Route: 065
  34. HEPARIN SODIUM INJECTION [Suspect]
     Route: 042
     Dates: start: 20071113, end: 20080113
  35. HEPARIN SODIUM INJECTION [Suspect]
     Route: 058
     Dates: start: 20071114, end: 20071115
  36. HEPARIN SODIUM INJECTION [Suspect]
     Route: 040
     Dates: start: 20071212, end: 20071212
  37. REMERON [Concomitant]
     Indication: PRODUCT USED FOR UNKNOWN INDICATION
     Route: 065
  38. CEFTRIAXONE [Concomitant]
     Indication: PRODUCT USED FOR UNKNOWN INDICATION
     Route: 065
  39. HEPARIN SODIUM INJECTION [Suspect]
     Indication: THROMBOSIS
     Route: 042
     Dates: start: 20071113, end: 20080113
  40. HEPARIN SODIUM INJECTION [Suspect]
     Route: 042
     Dates: start: 20071113, end: 20080113
  41. HEPARIN SODIUM INJECTION [Suspect]
     Route: 042
     Dates: start: 20071113, end: 20080113
  42. HEPARIN SODIUM INJECTION [Suspect]
     Route: 042
     Dates: start: 20071113, end: 20080113
  43. HEPARIN SODIUM INJECTION [Suspect]
     Route: 058
     Dates: start: 20071125, end: 20071125
  44. HEPARIN SODIUM INJECTION [Suspect]
     Route: 040
     Dates: start: 20071212, end: 20071212
  45. PREDNISONE [Concomitant]
     Indication: PRODUCT USED FOR UNKNOWN INDICATION
     Route: 065
  46. VALIUM [Concomitant]
     Indication: PRODUCT USED FOR UNKNOWN INDICATION
     Route: 065

REACTIONS (21)
  - SEPSIS [None]
  - DIZZINESS [None]
  - SCLERODERMA [None]
  - PNEUMOTHORAX [None]
  - ATRIAL FIBRILLATION [None]
  - PULMONARY FUNCTION TEST DECREASED [None]
  - PLEURAL EFFUSION [None]
  - DEEP VEIN THROMBOSIS [None]
  - DIARRHOEA [None]
  - BREAST CANCER [None]
  - MENTAL STATUS CHANGES [None]
  - FALL [None]
  - PULMONARY HYPERTENSION [None]
  - WHEEZING [None]
  - ANXIETY [None]
  - HAEMATOCHEZIA [None]
  - HYPONATRAEMIA [None]
  - HYPOTENSION [None]
  - LETHARGY [None]
  - DYSARTHRIA [None]
  - DYSPHAGIA [None]
